FAERS Safety Report 10274172 (Version 8)
Quarter: 2014Q4

REPORT INFORMATION
  Report Type: Spontaneous
  Country: US (occurrence: US)
  Receive Date: 20140702
  Receipt Date: 20141124
  Transmission Date: 20150528
  Serious: Yes (Hospitalization)
  Sender: FDA-Public Use
  Company Number: US-PFIZER INC-2014138897

PATIENT
  Age: 56 Year
  Sex: Male

DRUGS (8)
  1. AMLODINE [Concomitant]
     Active Substance: AMLODIPINE BESYLATE
     Dosage: 5 MG, 1X/DAY
  2. ATENOLOL. [Concomitant]
     Active Substance: ATENOLOL
     Dosage: 50 MG, 1X/DAY
  3. LYRICA [Suspect]
     Active Substance: PREGABALIN
     Indication: NEUROPATHY PERIPHERAL
  4. FUROSEMIDE. [Concomitant]
     Active Substance: FUROSEMIDE
     Dosage: 40 MG, 1X/DAY
     Dates: start: 201401
  5. SMZ-TMP [Concomitant]
     Active Substance: SULFAMETHOXAZOLE\TRIMETHOPRIM
     Dosage: (SULFAMETHOXAZOLE 800 MG, TRIMETHOPRIM 160 MG)
     Dates: start: 20141017
  6. LYRICA [Suspect]
     Active Substance: PREGABALIN
     Indication: PAIN IN EXTREMITY
     Dosage: UNK, 2X/DAY
  7. CIPROFLOXACIN. [Concomitant]
     Active Substance: CIPROFLOXACIN
     Indication: SKIN LESION
     Dosage: 500 (1 TABLET), 2X/DAY
     Route: 048
     Dates: start: 20141017
  8. CLONAZEPAM. [Concomitant]
     Active Substance: CLONAZEPAM
     Dosage: 20, UNK

REACTIONS (9)
  - Intentional product misuse [Recovered/Resolved]
  - Limb discomfort [Unknown]
  - Rash generalised [Not Recovered/Not Resolved]
  - Thinking abnormal [Recovered/Resolved]
  - Skin lesion [Not Recovered/Not Resolved]
  - Joint swelling [Not Recovered/Not Resolved]
  - Fluid retention [Not Recovered/Not Resolved]
  - Drug intolerance [Recovered/Resolved]
  - Tobacco user [Unknown]
